FAERS Safety Report 24301104 (Version 1)
Quarter: 2024Q3

REPORT INFORMATION
  Report Type: Spontaneous
  Country: GB (occurrence: GB)
  Receive Date: 20240910
  Receipt Date: 20240910
  Transmission Date: 20241016
  Serious: Yes (Life-Threatening, Hospitalization, Other)
  Sender: RISING PHARMACEUTICALS
  Company Number: GB-RISINGPHARMA-GB-2024RISLIT00316

PATIENT
  Age: 8 Decade
  Sex: Female

DRUGS (1)
  1. ALENDRONATE SODIUM [Suspect]
     Active Substance: ALENDRONATE SODIUM
     Indication: Product used for unknown indication
     Route: 065

REACTIONS (12)
  - Chemical burn of respiratory tract [Recovered/Resolved]
  - Hypersensitivity [Recovered/Resolved]
  - Foreign body aspiration [Recovered/Resolved]
  - Respiratory distress [Recovered/Resolved]
  - Mucosal necrosis [Recovered/Resolved]
  - Cough [Recovered/Resolved]
  - Dyspnoea [Recovered/Resolved]
  - Traumatic lung injury [Recovered/Resolved]
  - Oral mucosal exfoliation [Recovered/Resolved]
  - Dysphonia [Recovered/Resolved]
  - Dysphagia [Recovered/Resolved]
  - Erythema [Recovered/Resolved]
